FAERS Safety Report 15030316 (Version 1)
Quarter: 2018Q2

REPORT INFORMATION
  Report Type: Spontaneous
  Country: GB (occurrence: GB)
  Receive Date: 20180619
  Receipt Date: 20180619
  Transmission Date: 20180711
  Serious: Yes (Other)
  Sender: FDA-Public Use
  Company Number: GB-TEVA-2018-GB-909720

PATIENT
  Age: 66 Year
  Sex: Female

DRUGS (1)
  1. VENLAFAXINE [Suspect]
     Active Substance: VENLAFAXINE HYDROCHLORIDE
     Dosage: MODIFIED RELEASE NOT GIVEN.
     Route: 048

REACTIONS (2)
  - Incorrect drug dosage form administered [Unknown]
  - Malaise [Unknown]

NARRATIVE: CASE EVENT DATE: 20171024
